FAERS Safety Report 8262103-3 (Version None)
Quarter: 2012Q2

REPORT INFORMATION
  Report Type: 
  Country: None (occurrence: None)
  Receive Date: 20120405
  Receipt Date: 20120330
  Transmission Date: 20120825
  Serious: Yes (Other)
  Sender: FDA-Public Use
  Company Number: PHHY2012MX026185

PATIENT
  Sex: Female

DRUGS (6)
  1. CYMBALTA [Concomitant]
     Dosage: UNK UKN, UNK
  2. ZOLEDRONOC ACID [Suspect]
     Indication: OSTEOPOROSIS
     Dosage: 5 MG/100 ML, EACH YEAR
     Route: 042
     Dates: start: 20100101
  3. LEVOTHYROXINE SODIUM [Concomitant]
     Dosage: 1 DF, DAILY
     Dates: start: 20070101
  4. PLAQUENIL [Concomitant]
     Indication: RHEUMATOID ARTHRITIS
     Dates: start: 20090301
  5. LIPITOR [Concomitant]
     Dosage: 1 DF, DAILY
  6. ZOLEDRONOC ACID [Suspect]
     Dosage: 5 MG/100 ML, EACH YEAR
     Route: 042
     Dates: start: 20110117

REACTIONS (12)
  - CONJUNCTIVITIS [None]
  - EYE DISCHARGE [None]
  - OCULAR HYPERAEMIA [None]
  - BONE PAIN [None]
  - INFLUENZA [None]
  - LACRIMATION INCREASED [None]
  - VISION BLURRED [None]
  - NASOPHARYNGITIS [None]
  - DIPLOPIA [None]
  - BURNING SENSATION [None]
  - EYE PAIN [None]
  - EYELID OEDEMA [None]
